FAERS Safety Report 8730984 (Version 2)
Quarter: 2012Q4

REPORT INFORMATION
  Report Type: Spontaneous
  Country: US (occurrence: None)
  Receive Date: 20120726
  Receipt Date: 20120906
  Transmission Date: 20130627
  Serious: Yes (Death, Hospitalization)
  Sender: FDA-Public Use
  Company Number: AEUSA201200362

PATIENT
  Age: 32 Year
  Sex: Female

DRUGS (1)
  1. HYPERRHO [Suspect]
     Indication: PROPHYLAXIS AGAINST RH ISOIMMUNISATION
     Route: 030
     Dates: start: 20120711, end: 20120711

REACTIONS (6)
  - Myocardial infarction [None]
  - Cardiac failure [None]
  - Maternal exposure during pregnancy [None]
  - Foaming at mouth [None]
  - Caesarean section [None]
  - Myocarditis [None]
